FAERS Safety Report 9608574 (Version 1)
Quarter: 2013Q4

REPORT INFORMATION
  Report Type: Spontaneous
  Country: US (occurrence: None)
  Receive Date: 20131007
  Receipt Date: 20131007
  Transmission Date: 20140711
  Serious: Yes (Hospitalization)
  Sender: FDA-Public Use
  Company Number: None

PATIENT
  Age: 78 Year
  Sex: Female
  Weight: 64.86 kg

DRUGS (2)
  1. GEMCITABINE 1200 MG/M2 IV [Suspect]
     Indication: BLADDER CANCER
     Dosage: ONE CYCLE
  2. NEULASTA [Suspect]
     Indication: BLADDER CANCER

REACTIONS (5)
  - Escherichia urinary tract infection [None]
  - Pancytopenia [None]
  - Nausea [None]
  - Vomiting [None]
  - Pain [None]
